FAERS Safety Report 7545940-X (Version None)
Quarter: 2011Q2

REPORT INFORMATION
  Report Type: 
  Country: None (occurrence: None)
  Receive Date: 20110614
  Receipt Date: 20110531
  Transmission Date: 20111010
  Serious: Yes (Other)
  Sender: FDA-Public Use
  Company Number: PHHY2011BE49521

PATIENT
  Sex: Female

DRUGS (1)
  1. FEMARA [Suspect]
     Indication: BREAST CANCER
     Dosage: UNK
     Route: 048

REACTIONS (4)
  - EPIDERMAL NECROSIS [None]
  - PARAKERATOSIS [None]
  - HYPERKERATOSIS [None]
  - TOXIC SKIN ERUPTION [None]
